FAERS Safety Report 21681466 (Version 2)
Quarter: 2022Q4

REPORT INFORMATION
  Report Type: Spontaneous
  Country: GB (occurrence: GB)
  Receive Date: 20221205
  Receipt Date: 20221207
  Transmission Date: 20230113
  Serious: Yes (Other)
  Sender: FDA-Public Use
  Company Number: CA-002147023-NVSC2022GB277553

PATIENT
  Age: 38 Year
  Sex: Female

DRUGS (1)
  1. NILOTINIB [Suspect]
     Active Substance: NILOTINIB
     Indication: Chronic myeloid leukaemia
     Dosage: 300 MG, BID
     Route: 065
     Dates: start: 202203

REACTIONS (2)
  - Chronic myeloid leukaemia recurrent [Unknown]
  - Chronic myeloid leukaemia transformation [Unknown]

NARRATIVE: CASE EVENT DATE: 20220801
